FAERS Safety Report 19406463 (Version 1)
Quarter: 2021Q2

REPORT INFORMATION
  Report Type: Spontaneous
  Country: CA (occurrence: CA)
  Receive Date: 20210611
  Receipt Date: 20210611
  Transmission Date: 20210717
  Serious: Yes (Hospitalization)
  Sender: FDA-Public Use
  Company Number: CA-PFIZER INC-2021629657

PATIENT
  Age: 74 Year
  Sex: Male

DRUGS (2)
  1. HYDROMORPHONE HYDROCHLORIDE. [Suspect]
     Active Substance: HYDROMORPHONE HYDROCHLORIDE
     Indication: PAIN
     Dosage: UNK
     Route: 065
  2. REVLIMID [Suspect]
     Active Substance: LENALIDOMIDE
     Indication: PLASMA CELL MYELOMA
     Dosage: 10 MG 21 EVERY 28 DAYS
     Route: 048

REACTIONS (4)
  - Somnolence [Unknown]
  - Pain [Unknown]
  - Colitis [Unknown]
  - Pulmonary thrombosis [Unknown]
